FAERS Safety Report 5962216-2 (Version None)
Quarter: 2008Q4

REPORT INFORMATION
  Report Type: 
  Country: None (occurrence: None)
  Receive Date: 20081121
  Receipt Date: 20081113
  Transmission Date: 20090506
  Serious: Yes (Hospitalization, Other)
  Sender: FDA-Public Use
  Company Number: PHHO2006IT00757

PATIENT
  Sex: Female
  Weight: 67 kg

DRUGS (9)
  1. ICL670A ICL+DISTAB [Suspect]
     Indication: HAEMOSIDEROSIS
     Dosage: 1375 MG DAILY
     Route: 048
     Dates: start: 20040910, end: 20051031
  2. ICL670A ICL+DISTAB [Suspect]
     Dosage: 20 MG/KG, QD
     Route: 048
     Dates: start: 20051101, end: 20060527
  3. ICL670A ICL+DISTAB [Suspect]
     Dosage: 30 MG/KG, QD
     Route: 048
     Dates: start: 20060528, end: 20071029
  4. ICL670A ICL+DISTAB [Suspect]
     Dosage: 40 MG/KG, QD
     Route: 048
     Dates: start: 20071030
  5. EUTIROX [Concomitant]
  6. LUCEN [Concomitant]
  7. CARDIOASPIRINA [Concomitant]
  8. LOSAPREX [Concomitant]
  9. NEXIUM [Concomitant]

REACTIONS (10)
  - ABDOMINAL PAIN [None]
  - ATRIAL FIBRILLATION [None]
  - ATRIAL FLUTTER [None]
  - CARDIAC FAILURE [None]
  - DYSPNOEA [None]
  - HEPATOMEGALY [None]
  - LEFT VENTRICULAR DYSFUNCTION [None]
  - MYOCARDITIS [None]
  - RESTRICTIVE CARDIOMYOPATHY [None]
  - TACHYCARDIA [None]
